FAERS Safety Report 23058171 (Version 1)
Quarter: 2023Q4

REPORT INFORMATION
  Report Type: Spontaneous
  Country: NO (occurrence: NO)
  Receive Date: 20231012
  Receipt Date: 20231012
  Transmission Date: 20240109
  Serious: Yes (Other)
  Sender: FDA-Public Use
  Company Number: NO-TEVA-2023-NO-2933142

PATIENT
  Sex: Female

DRUGS (1)
  1. FENTANYL TRANSDERMAL SYSTEM [Suspect]
     Active Substance: FENTANYL
     Indication: Product used for unknown indication
     Dosage: DOSING REGIMEN: 25 G/HOUR
     Route: 062
     Dates: start: 202211

REACTIONS (4)
  - Illness [Unknown]
  - Near death experience [Unknown]
  - Loss of consciousness [Unknown]
  - Device malfunction [Unknown]
